FAERS Safety Report 18016957 (Version 2)
Quarter: 2021Q1

REPORT INFORMATION
  Report Type: Report from Study
  Country: None (occurrence: CA)
  Receive Date: 20200714
  Receipt Date: 20210202
  Transmission Date: 20210419
  Serious: Yes (Other)
  Sender: FDA-Public Use
  Company Number: CA-ABBVIE-20K-028-3479131-00

PATIENT
  Sex: Female

DRUGS (3)
  1. HUMIRA [Suspect]
     Active Substance: ADALIMUMAB
     Route: 058
     Dates: start: 2020, end: 20210115
  2. GABAPENTIN. [Suspect]
     Active Substance: GABAPENTIN
     Indication: PAIN
     Dosage: AS NEEDED
     Route: 048
     Dates: start: 2020
  3. HUMIRA [Suspect]
     Active Substance: ADALIMUMAB
     Indication: ANKYLOSING SPONDYLITIS
     Route: 058
     Dates: start: 20190219, end: 2020

REACTIONS (28)
  - Systemic lupus erythematosus [Unknown]
  - Dizziness [Not Recovered/Not Resolved]
  - Fatigue [Unknown]
  - Poor quality sleep [Unknown]
  - Photosensitivity reaction [Unknown]
  - Alopecia [Not Recovered/Not Resolved]
  - Urinary tract infection [Recovered/Resolved]
  - Weight decreased [Recovered/Resolved]
  - Joint range of motion decreased [Unknown]
  - Sinusitis [Unknown]
  - Tooth abscess [Unknown]
  - Loss of consciousness [Recovered/Resolved]
  - Asthenia [Recovered/Resolved]
  - Illness [Unknown]
  - Musculoskeletal stiffness [Unknown]
  - Dehydration [Unknown]
  - Drug ineffective [Not Recovered/Not Resolved]
  - Pain of skin [Unknown]
  - Nasal ulcer [Not Recovered/Not Resolved]
  - Malaise [Recovered/Resolved]
  - Pain [Unknown]
  - Back pain [Unknown]
  - Asthenia [Unknown]
  - Breast mass [Unknown]
  - Rash [Not Recovered/Not Resolved]
  - Pain [Recovered/Resolved]
  - Cystitis [Unknown]
  - Weight decreased [Unknown]

NARRATIVE: CASE EVENT DATE: 2020
